FAERS Safety Report 19061190 (Version 2)
Quarter: 2021Q1

REPORT INFORMATION
  Report Type: Spontaneous
  Country: RO (occurrence: RO)
  Receive Date: 20210326
  Receipt Date: 20210329
  Transmission Date: 20210420
  Serious: Yes (Other)
  Sender: FDA-Public Use
  Company Number: RO-ROCHE-2793532

PATIENT
  Age: 64 Year
  Sex: Female

DRUGS (4)
  1. ATEZOLIZUMAB. [Suspect]
     Active Substance: ATEZOLIZUMAB
     Indication: NON-SMALL CELL LUNG CANCER METASTATIC
     Route: 042
     Dates: start: 202011
  2. GEFITINIB. [Concomitant]
     Active Substance: GEFITINIB
  3. ZOMETA [Concomitant]
     Active Substance: ZOLEDRONIC ACID
  4. OSIMERTINIB. [Concomitant]
     Active Substance: OSIMERTINIB

REACTIONS (7)
  - Bone pain [Unknown]
  - Blood glucose increased [Unknown]
  - Lymphocyte count decreased [Unknown]
  - Blood lactate dehydrogenase increased [Unknown]
  - Blood alkaline phosphatase decreased [Unknown]
  - Procalcitonin decreased [Unknown]
  - Neoplasm [Unknown]

NARRATIVE: CASE EVENT DATE: 202102
